FAERS Safety Report 6588034-2 (Version None)
Quarter: 2010Q1

REPORT INFORMATION
  Report Type: 
  Country: None (occurrence: None)
  Receive Date: 20100217
  Receipt Date: 20100217
  Transmission Date: 20100710
  Serious: Yes (Disabling)
  Sender: FDA-Public Use
  Company Number: None

PATIENT
  Age: 76 Year
  Sex: Male
  Weight: 75.7507 kg

DRUGS (1)
  1. METOPROLOL SUCCINATE [Suspect]
     Indication: BLOOD PRESSURE MANAGEMENT
     Dosage: 50 MG TWICE A DAY
     Dates: start: 20091208, end: 20100107

REACTIONS (3)
  - BLOOD PRESSURE INCREASED [None]
  - RENAL DISORDER [None]
  - TINNITUS [None]
